FAERS Safety Report 6615280-1 (Version None)
Quarter: 2010Q1

REPORT INFORMATION
  Report Type: 
  Country: None (occurrence: None)
  Receive Date: 20100301
  Receipt Date: 20100215
  Transmission Date: 20100710
  Serious: Yes (Other)
  Sender: FDA-Public Use
  Company Number: FR-1180857

PATIENT
  Age: 77 Year
  Sex: Female

DRUGS (4)
  1. AZOPT [Suspect]
     Dosage: OPHTHALMIC
     Route: 047
  2. LEVOTHYROXINE SODIUM [Concomitant]
  3. ISOPTIN [Concomitant]
  4. ECAZIDE (CAPOZIDE) [Concomitant]

REACTIONS (1)
  - BRONCHOPNEUMOPATHY [None]
